FAERS Safety Report 13159026 (Version 1)
Quarter: 2017Q1

REPORT INFORMATION
  Report Type: Spontaneous
  Country: IT (occurrence: IT)
  Receive Date: 20170127
  Receipt Date: 20170127
  Transmission Date: 20170428
  Serious: Yes (Other)
  Sender: FDA-Public Use
  Company Number: PHHY2016IT142692

PATIENT
  Age: 75 Year
  Sex: Female

DRUGS (3)
  1. NORVASC [Concomitant]
     Active Substance: AMLODIPINE BESYLATE
     Indication: HYPERTENSION
     Dosage: UNK (CONCENTRATION 5 MG)
     Route: 065
  2. NORVASC [Concomitant]
     Active Substance: AMLODIPINE BESYLATE
     Dosage: 1 DF (CONCENTRATION 10 MG), Q8H
  3. COTAREG [Suspect]
     Active Substance: HYDROCHLOROTHIAZIDE\VALSARTAN
     Indication: PRODUCT USED FOR UNKNOWN INDICATION
     Dosage: 172.5 MG, QD
     Route: 048

REACTIONS (13)
  - Malaise [Recovering/Resolving]
  - Chest pain [Recovering/Resolving]
  - Tinnitus [Recovering/Resolving]
  - Hyponatraemia [Recovering/Resolving]
  - Depression [Unknown]
  - Abdominal pain [Recovering/Resolving]
  - Dysuria [Recovering/Resolving]
  - Decreased appetite [Recovering/Resolving]
  - Electrolyte imbalance [Recovering/Resolving]
  - Dystonia [Unknown]
  - Asthenia [Recovering/Resolving]
  - Headache [Recovering/Resolving]
  - Blood pressure increased [Unknown]

NARRATIVE: CASE EVENT DATE: 20160501
